FAERS Safety Report 4805389-7 (Version None)
Quarter: 2005Q4

REPORT INFORMATION
  Report Type: 
  Country: None (occurrence: None)
  Receive Date: 20051017
  Receipt Date: 20051007
  Transmission Date: 20060501
  Serious: Yes (Other)
  Sender: FDA-Public Use
  Company Number: 2005114421

PATIENT
  Age: 63 Year
  Sex: Female
  Weight: 88.4514 kg

DRUGS (16)
  1. NEURONTIN [Suspect]
     Indication: ILL-DEFINED DISORDER
     Dosage: 1200 MG (600 MG, 2 IN 1 D)
  2. VISTARIL [Suspect]
     Indication: HYPERSENSITIVITY
     Dosage: 2 IN 1D
  3. ACCUPRIL [Suspect]
     Indication: HYPERTENSION
     Dosage: 30 MG (20MG QAM, 10MG QPM)
  4. THEO-24 (THEOPHYLLINE) [Concomitant]
  5. HYDROCODONE BITARTRATE [Concomitant]
  6. COATED ASPIRIN (ACETYLSALICYLIC ACID) [Concomitant]
  7. SEROQUEL [Concomitant]
  8. ZAROXOLYN [Concomitant]
  9. HYDROXYZINE [Concomitant]
  10. PROTONIX [Concomitant]
  11. ZOCOR [Concomitant]
  12. FUROSEMIDE [Concomitant]
  13. POTASSIUM (POTASSIUM) [Concomitant]
  14. XANAX [Concomitant]
  15. DICYCLOMINE (DICYCLOVERINE) [Concomitant]
  16. CYCLOBENZAPRINE HCL [Concomitant]

REACTIONS (2)
  - FALL [None]
  - LOWER LIMB FRACTURE [None]
